FAERS Safety Report 11943982 (Version 1)
Quarter: 2016Q1

REPORT INFORMATION
  Report Type: Spontaneous
  Country: US (occurrence: US)
  Receive Date: 20160125
  Receipt Date: 20160125
  Transmission Date: 20160526
  Serious: No
  Sender: FDA-Public Use
  Company Number: US-UNITED THERAPEUTICS-UNT-2015-005086

PATIENT
  Sex: Female
  Weight: 70.75 kg

DRUGS (15)
  1. ANTIBIOTIC                         /00011701/ [Suspect]
     Active Substance: UNSPECIFIED INGREDIENT
     Indication: PRODUCT USED FOR UNKNOWN INDICATION
  2. ORENITRAM [Suspect]
     Active Substance: TREPROSTINIL
     Dosage: 6.5 MG, Q8H
     Route: 048
     Dates: start: 20150123
  3. REMODULIN [Suspect]
     Active Substance: TREPROSTINIL
     Dosage: UNK
     Route: 041
  4. COUMADIN [Concomitant]
     Active Substance: WARFARIN SODIUM
     Indication: PRODUCT USED FOR UNKNOWN INDICATION
  5. ORENITRAM [Suspect]
     Active Substance: TREPROSTINIL
     Dosage: 8 MG, TID
     Route: 048
     Dates: start: 20150121
  6. REMODULIN [Suspect]
     Active Substance: TREPROSTINIL
     Indication: PULMONARY HYPERTENSION
     Dosage: 0.0435 ?G/KG/MIN, CONTINUING
     Route: 041
     Dates: start: 20071107
  7. REMODULIN [Suspect]
     Active Substance: TREPROSTINIL
     Dosage: 0.0193 ?G/KG/MIN, CONTINUING
     Route: 041
     Dates: start: 20071107
  8. OPSUMIT [Concomitant]
     Active Substance: MACITENTAN
     Indication: PRODUCT USED FOR UNKNOWN INDICATION
  9. ORENITRAM [Suspect]
     Active Substance: TREPROSTINIL
     Indication: PULMONARY HYPERTENSION
     Dosage: 1 MG, TID
     Route: 048
     Dates: start: 20150123
  10. REMODULIN [Suspect]
     Active Substance: TREPROSTINIL
     Dosage: 0.0267 ?G/KG/MIN, CONTINUING
     Route: 041
  11. REMODULIN [Suspect]
     Active Substance: TREPROSTINIL
     Dosage: 0.0342 ?G/KG/MIN,CONTINUING
     Route: 041
     Dates: start: 20071107
  12. ORENITRAM [Suspect]
     Active Substance: TREPROSTINIL
     Dosage: 8 MG, TID
     Route: 048
  13. ORENITRAM [Suspect]
     Active Substance: TREPROSTINIL
     Dosage: UNK
     Route: 048
  14. ORENITRAM [Suspect]
     Active Substance: TREPROSTINIL
     Dosage: UNK
     Route: 048
  15. ORENITRAM [Suspect]
     Active Substance: TREPROSTINIL
     Dosage: UNK
     Route: 048

REACTIONS (17)
  - Cough [Unknown]
  - Dizziness [Unknown]
  - Diarrhoea [Unknown]
  - Sensation of foreign body [Unknown]
  - Nasal congestion [Unknown]
  - Decreased appetite [Unknown]
  - Nasopharyngitis [Unknown]
  - Candida infection [Unknown]
  - Sinusitis [Unknown]
  - Nausea [Unknown]
  - Injection site pain [Recovered/Resolved]
  - Sinus congestion [Unknown]
  - Oedema peripheral [Unknown]
  - Headache [Unknown]
  - Pain in extremity [Unknown]
  - Dyspnoea [Not Recovered/Not Resolved]
  - Face oedema [Unknown]
